FAERS Safety Report 10419033 (Version 2)
Quarter: 2014Q3

REPORT INFORMATION
  Report Type: Report from Study
  Country: JP (occurrence: JP)
  Receive Date: 20140829
  Receipt Date: 20140905
  Transmission Date: 20150326
  Serious: Yes (Death)
  Sender: FDA-Public Use
  Company Number: JP-PFIZER INC-2014237187

PATIENT
  Age: 67 Year
  Sex: Female
  Weight: 56.9 kg

DRUGS (3)
  1. AXITINIB [Suspect]
     Active Substance: AXITINIB
     Indication: RENAL CELL CARCINOMA
     Dosage: 2.5 MG, 2X/DAY
     Route: 048
     Dates: start: 20140317, end: 20140319
  2. DIOVAN [Concomitant]
     Active Substance: VALSARTAN
     Dosage: 80 MG, 1X/DAY
     Route: 048
  3. AXITINIB [Suspect]
     Active Substance: AXITINIB
     Dosage: 1.5 MG, 2X/DAY
     Route: 048
     Dates: start: 20140407, end: 20140411

REACTIONS (2)
  - Renal cell carcinoma [Fatal]
  - Disease progression [Fatal]

NARRATIVE: CASE EVENT DATE: 20140807
